FAERS Safety Report 5909028-3 (Version None)
Quarter: 2008Q4

REPORT INFORMATION
  Report Type: 
  Country: None (occurrence: None)
  Receive Date: 20081006
  Receipt Date: 20080930
  Transmission Date: 20090506
  Serious: Yes (Hospitalization)
  Sender: FDA-Public Use
  Company Number: FR-BRISTOL-MYERS SQUIBB COMPANY-14354443

PATIENT
  Age: 61 Year
  Sex: Male

DRUGS (3)
  1. CETUXIMAB [Suspect]
     Indication: BILE DUCT CANCER
     Dosage: MOST RECENT INFUSION: 06AUG08
     Route: 042
     Dates: start: 20080707, end: 20080909
  2. ELOXATIN [Suspect]
     Indication: BILE DUCT CANCER
     Dosage: MOST RECENT INFUSION: 06AUG08
     Route: 042
     Dates: start: 20080708, end: 20080910
  3. GEMZAR [Suspect]
     Indication: BILE DUCT CANCER
     Dosage: MOST RECENT INFUSION: 06AUG08
     Route: 042
     Dates: start: 20080707, end: 20080910

REACTIONS (1)
  - PANCREATITIS ACUTE [None]
